FAERS Safety Report 23187765 (Version 1)
Quarter: 2023Q4

REPORT INFORMATION
  Report Type: Spontaneous
  Country: US (occurrence: US)
  Receive Date: 20231115
  Receipt Date: 20231115
  Transmission Date: 20240110
  Serious: Yes (Other)
  Sender: FDA-Public Use
  Company Number: US-NOVOPROD-1063178

PATIENT
  Age: 36 Year
  Sex: Male

DRUGS (6)
  1. NOVOLOG [Suspect]
     Active Substance: INSULIN ASPART
     Indication: Type 1 diabetes mellitus
     Dosage: 2.5 UNITS EVERY HOUR, 17UNITS
     Route: 058
     Dates: start: 20230503, end: 20230506
  2. NOVOLOG [Suspect]
     Active Substance: INSULIN ASPART
     Dosage: 2.5 UNITS EVERY HOUR, 17 UNITS
     Route: 058
     Dates: start: 20230503, end: 20230506
  3. NOVOLOG [Suspect]
     Active Substance: INSULIN ASPART
     Dosage: SOMETIMES DOUBLING THE DOSE
  4. NOVOLOG [Suspect]
     Active Substance: INSULIN ASPART
     Dosage: 2.5 UNITS EVERY HOUR, 17 UNITS
     Route: 058
     Dates: start: 20230503, end: 20230506
  5. NOVOLOG [Suspect]
     Active Substance: INSULIN ASPART
     Dosage: 17 UNITS
     Route: 058
  6. NOVOLOG [Suspect]
     Active Substance: INSULIN ASPART
     Dosage: 2.5 UNITS EVERY HOUR, 17 UNITS
     Route: 058
     Dates: start: 20230503, end: 20230506

REACTIONS (5)
  - Blood glucose increased [Recovered/Resolved]
  - Product quality issue [Recovered/Resolved]
  - Blood glucose increased [Unknown]
  - Drug ineffective [Recovered/Resolved]
  - Product quality issue [Unknown]
